FAERS Safety Report 4919351-7 (Version None)
Quarter: 2006Q1

REPORT INFORMATION
  Report Type: 
  Country: None (occurrence: None)
  Receive Date: 20060216
  Receipt Date: 20060131
  Transmission Date: 20060701
  Serious: Yes (Hospitalization, Disabling)
  Sender: FDA-Public Use
  Company Number: 408870

PATIENT
  Age: 33 Year
  Sex: Male
  Weight: 81.6 kg

DRUGS (2)
  1. ACCUTANE [Suspect]
     Indication: ACNE
     Dosage: 20 MG 2 PER DAY ORAL
     Route: 048
     Dates: start: 20010615, end: 20011115
  2. ACETAMINOPHEN [Concomitant]

REACTIONS (26)
  - ANAEMIA [None]
  - ANHEDONIA [None]
  - ANXIETY [None]
  - BOWEL MOVEMENT IRREGULARITY [None]
  - COLITIS [None]
  - CROHN'S DISEASE [None]
  - DYSPEPSIA [None]
  - FEELING JITTERY [None]
  - GASTRIC DISORDER [None]
  - GASTROINTESTINAL DISORDER [None]
  - HYPERSENSITIVITY [None]
  - INFLAMMATORY BOWEL DISEASE [None]
  - INJURY [None]
  - INTESTINAL HAEMORRHAGE [None]
  - INTESTINAL OBSTRUCTION [None]
  - IRRITABLE BOWEL SYNDROME [None]
  - MUCOUS STOOLS [None]
  - MULTI-ORGAN DISORDER [None]
  - OEDEMA [None]
  - OESOPHAGEAL DISORDER [None]
  - PHARMACEUTICAL PRODUCT COMPLAINT [None]
  - RETINOPATHY [None]
  - SCOTOMA [None]
  - SOMNOLENCE [None]
  - VISION BLURRED [None]
  - WEIGHT DECREASED [None]
